FAERS Safety Report 6379638-0 (Version None)
Quarter: 2009Q3

REPORT INFORMATION
  Report Type: 
  Country: None (occurrence: None)
  Receive Date: 20090924
  Receipt Date: 20090924
  Transmission Date: 20100115
  Serious: Yes (Hospitalization)
  Sender: FDA-Public Use
  Company Number: None

PATIENT
  Sex: Male
  Weight: 109.7705 kg

DRUGS (10)
  1. AVASTIN [Suspect]
     Indication: RENAL CELL CARCINOMA
     Dosage: AVASTIN 1045 MG IV Q 2
     Route: 042
     Dates: start: 20070109, end: 20080805
  2. NORVASC [Concomitant]
  3. HYDROCHLOROTHIAZIDE [Concomitant]
  4. OXYCONTIN [Concomitant]
  5. OXYCODONE HCL [Concomitant]
  6. FLOMAX [Concomitant]
  7. NEXIUM [Concomitant]
  8. MULTI-VITAMIN [Concomitant]
  9. SINGULAIR [Concomitant]
  10. XANAX [Concomitant]

REACTIONS (1)
  - HAEMOPTYSIS [None]
